FAERS Safety Report 6181069-3 (Version None)
Quarter: 2009Q2

REPORT INFORMATION
  Report Type: 
  Country: None (occurrence: None)
  Receive Date: 20090504
  Receipt Date: 20090504
  Transmission Date: 20091009
  Serious: Yes (Other)
  Sender: FDA-Public Use
  Company Number: None

PATIENT
  Age: 38 Year
  Sex: Female
  Weight: 59.7 kg

DRUGS (1)
  1. PACLITAXEL [Suspect]
     Indication: BREAST CANCER
     Dosage: 282 MG, DAILY, INTRAVENOUS
     Route: 042
     Dates: start: 20090120

REACTIONS (5)
  - DIZZINESS [None]
  - DRUG HYPERSENSITIVITY [None]
  - HOT FLUSH [None]
  - INCORRECT DRUG ADMINISTRATION RATE [None]
  - NO REACTION ON PREVIOUS EXPOSURE TO DRUG [None]
